FAERS Safety Report 20475980 (Version 1)
Quarter: 2022Q1

REPORT INFORMATION
  Report Type: Spontaneous
  Country: US (occurrence: None)
  Receive Date: 20220215
  Receipt Date: 20220215
  Transmission Date: 20220424
  Serious: Yes (Other)
  Sender: FDA-Public Use
  Company Number: None

PATIENT
  Age: 39 Year
  Sex: Female
  Weight: 90 kg

DRUGS (1)
  1. BENZOIN TINCTURE [Suspect]
     Active Substance: BENZOIN RESIN
     Indication: Product used for unknown indication
     Dates: start: 20220214, end: 20220215

REACTIONS (3)
  - Hypersensitivity [None]
  - Urticaria [None]
  - Dermatitis [None]

NARRATIVE: CASE EVENT DATE: 20220214
